FAERS Safety Report 9569381 (Version 1)
Quarter: 2013Q3

REPORT INFORMATION
  Report Type: Spontaneous
  Country: US (occurrence: US)
  Receive Date: 20130930
  Receipt Date: 20130930
  Transmission Date: 20140515
  Serious: No
  Sender: FDA-Public Use
  Company Number: US-AMGEN-USASP2013066506

PATIENT
  Age: 59 Year
  Sex: Male
  Weight: 77.1 kg

DRUGS (9)
  1. ENBREL [Suspect]
     Indication: PRODUCT USED FOR UNKNOWN INDICATION
     Dosage: 25 MG, 2 TIMES/WK
     Route: 058
  2. METOPROLOL TARTRATE [Concomitant]
     Dosage: 25 MG, UNK
  3. LEUCOVORIN CALCIUM [Concomitant]
     Dosage: 25 MG, UNK
  4. METHOTREXATE [Concomitant]
     Dosage: 2.5 MG, UNK
  5. ASPIRIN BUFFERED [Concomitant]
     Dosage: 325 MG, UNK
  6. MULTIVITAMINS, PLAIN [Concomitant]
  7. CALCIUM CITRATE +D [Concomitant]
     Dosage: UNK
  8. GLUCO + CHONDROITIN [Concomitant]
     Dosage: UNK
  9. TRAMADOL HCL [Concomitant]
     Dosage: 50 MG, UNK

REACTIONS (2)
  - Pain [Unknown]
  - Fatigue [Unknown]
